FAERS Safety Report 8608032-4 (Version None)
Quarter: 2012Q3

REPORT INFORMATION
  Report Type: 
  Country: None (occurrence: None)
  Receive Date: 20120809
  Receipt Date: 20120809
  Transmission Date: 20120928
  Serious: Yes (Other)
  Sender: FDA-Public Use
  Company Number: None

PATIENT
  Age: 66 Year
  Sex: Female
  Weight: 53.5244 kg

DRUGS (2)
  1. PREDNISONE TAB [Suspect]
     Indication: POLYMYALGIA RHEUMATICA
     Dosage: 5MG-INITIALLY TWO 5 MG TABLETS 1 OR 2 DAILY PO
     Route: 048
     Dates: start: 20110324, end: 20111231
  2. PREDNISONE TAB [Suspect]
     Dosage: 1 MG CURRENTLY 3 DAILY PO
     Route: 048
     Dates: start: 20111224, end: 20120724

REACTIONS (2)
  - CIRCUMSTANCE OR INFORMATION CAPABLE OF LEADING TO MEDICATION ERROR [None]
  - OVERDOSE [None]
